FAERS Safety Report 9482004 (Version 4)
Quarter: 2014Q1

REPORT INFORMATION
  Report Type: Spontaneous
  Country: US (occurrence: US)
  Receive Date: 20130828
  Receipt Date: 20140311
  Transmission Date: 20141002
  Serious: Yes (Other)
  Sender: FDA-Public Use
  Company Number: US-AMGEN-USASP2013059288

PATIENT
  Age: 60 Year
  Sex: Female
  Weight: 50.79 kg

DRUGS (2)
  1. PROLIA [Suspect]
     Indication: OSTEOPOROSIS POSTMENOPAUSAL
     Dosage: UNK UNK, Q6MO
     Route: 065
     Dates: start: 201112
  2. CYMBALTA [Concomitant]

REACTIONS (9)
  - Pyogenic granuloma [Unknown]
  - Jaw disorder [Recovering/Resolving]
  - Pain in jaw [Unknown]
  - Pain [Unknown]
  - Gingivitis [Unknown]
  - Toothache [Unknown]
  - Oral pain [Recovered/Resolved]
  - Oral disorder [Unknown]
  - Gingival disorder [Unknown]
